FAERS Safety Report 20218746 (Version 2)
Quarter: 2022Q1

REPORT INFORMATION
  Report Type: Report from Study
  Country: GB (occurrence: GB)
  Receive Date: 20211222
  Receipt Date: 20220103
  Transmission Date: 20220423
  Serious: Yes (Death)
  Sender: FDA-Public Use
  Company Number: GB-CELGENE-GBR-20211205916

PATIENT
  Age: 91 Year
  Sex: Male

DRUGS (2)
  1. LENALIDOMIDE [Suspect]
     Active Substance: LENALIDOMIDE
     Indication: Follicular lymphoma
     Dosage: D1-21 EACH CYCLE
     Route: 048
     Dates: start: 20201204, end: 20210324
  2. RITUXIMAB [Suspect]
     Active Substance: RITUXIMAB
     Indication: Follicular lymphoma
     Route: 065

REACTIONS (1)
  - Follicular lymphoma [Fatal]

NARRATIVE: CASE EVENT DATE: 20210325
